FAERS Safety Report 10408710 (Version 1)
Quarter: 2014Q1

REPORT INFORMATION
  Report Type: Spontaneous
  Country: US (occurrence: None)
  Receive Date: 20130305
  Receipt Date: 20130305
  Transmission Date: 20141002
  Serious: Yes (Hospitalization, Other)
  Sender: FDA-Public Use
  Company Number: 2012000096S

PATIENT
  Age: 30 Year
  Sex: Female
  Weight: 106.6 kg

DRUGS (1)
  1. NAPRELAN [Suspect]

REACTIONS (1)
  - Gastrointestinal ulcer [None]
